FAERS Safety Report 20114081 (Version 2)
Quarter: 2022Q1

REPORT INFORMATION
  Report Type: Spontaneous
  Country: GB (occurrence: GB)
  Receive Date: 20211125
  Receipt Date: 20220106
  Transmission Date: 20220423
  Serious: Yes (Hospitalization)
  Sender: FDA-Public Use
  Company Number: GB-SA-2021SA368515

PATIENT
  Age: 13 Year
  Sex: Female
  Weight: 54.4 kg

DRUGS (6)
  1. DEXAMETHASONE SODIUM PHOSPHATE [Suspect]
     Active Substance: DEXAMETHASONE SODIUM PHOSPHATE
     Dosage: UNK
     Dates: start: 20201209
  2. DEXAMETHASONE SODIUM PHOSPHATE [Suspect]
     Active Substance: DEXAMETHASONE SODIUM PHOSPHATE
     Dosage: UNK
  3. DOCETAXEL [Suspect]
     Active Substance: DOCETAXEL
     Indication: Synovial sarcoma
     Dosage: 117 MG, CYCLIC
     Route: 042
     Dates: start: 20201209, end: 20210310
  4. GEMCITABINE HYDROCHLORIDE [Suspect]
     Active Substance: GEMCITABINE HYDROCHLORIDE
     Indication: Synovial sarcoma
     Dosage: 1404 MG, CYCLIC
     Route: 042
     Dates: start: 20201201, end: 20210310
  5. RAMUCIRUMAB [Suspect]
     Active Substance: RAMUCIRUMAB
     Indication: Synovial sarcoma
     Dosage: 489.6 MG, CYCLIC
     Route: 042
     Dates: start: 20201201, end: 20210310
  6. GRANULOCYTE COLONY-STIMULATING FACTOR NOS [Concomitant]
     Active Substance: GRANULOCYTE COLONY-STIMULATING FACTOR NOS
     Dosage: UNK
     Dates: start: 20201211

REACTIONS (12)
  - Pyrexia [Recovered/Resolved]
  - C-reactive protein increased [Unknown]
  - White blood cell count increased [Unknown]
  - Pain of skin [Recovering/Resolving]
  - Platelet count increased [Unknown]
  - Dyspnoea [Unknown]
  - Haemoglobin decreased [Unknown]
  - Platelet count decreased [Unknown]
  - Erythema [Recovering/Resolving]
  - Pleural effusion [Unknown]
  - Infection [Unknown]
  - Off label use [Unknown]

NARRATIVE: CASE EVENT DATE: 20210101
